FAERS Safety Report 6899112-2 (Version None)
Quarter: 2010Q3

REPORT INFORMATION
  Report Type: 
  Country: None (occurrence: None)
  Receive Date: 20100802
  Receipt Date: 20080108
  Transmission Date: 20110219
  Serious: No
  Sender: FDA-Public Use
  Company Number: US-PFIZER INC-2008003969

PATIENT
  Sex: Male

DRUGS (2)
  1. LYRICA [Suspect]
     Indication: NEURALGIA
     Route: 048
     Dates: start: 20070920
  2. BENICAR [Suspect]
     Route: 048
     Dates: start: 20070920

REACTIONS (3)
  - DIZZINESS [None]
  - HEAD DISCOMFORT [None]
  - HEADACHE [None]
